FAERS Safety Report 7711995-2 (Version None)
Quarter: 2011Q3

REPORT INFORMATION
  Report Type: 
  Country: None (occurrence: None)
  Receive Date: 20110826
  Receipt Date: 20110818
  Transmission Date: 20111222
  Serious: Yes (Other)
  Sender: FDA-Public Use
  Company Number: IE-JNJFOC-20110708318

PATIENT
  Age: 49 Year
  Sex: Male

DRUGS (11)
  1. XARELTO [Suspect]
     Route: 048
  2. XARELTO [Suspect]
     Route: 048
     Dates: end: 20110607
  3. XARELTO [Suspect]
     Route: 048
     Dates: end: 20110607
  4. XARELTO [Suspect]
     Route: 048
  5. XARELTO [Suspect]
     Indication: TENDON OPERATION
     Route: 048
     Dates: start: 20110101
  6. XARELTO [Suspect]
     Indication: POSTOPERATIVE CARE
     Route: 048
     Dates: start: 20110101
  7. XARELTO [Suspect]
     Route: 048
  8. XARELTO [Suspect]
     Indication: MOBILITY DECREASED
     Route: 048
     Dates: start: 20110101
  9. ACETAMINOPHEN [Concomitant]
     Indication: PAIN
  10. XARELTO [Suspect]
     Route: 048
     Dates: end: 20110607
  11. DICLOFENAC SODIUM [Concomitant]
     Indication: PAIN

REACTIONS (2)
  - PULMONARY EMBOLISM [None]
  - CHEST PAIN [None]
